FAERS Safety Report 20290995 (Version 2)
Quarter: 2022Q1

REPORT INFORMATION
  Report Type: Spontaneous
  Country: US (occurrence: US)
  Receive Date: 20220104
  Receipt Date: 20220223
  Transmission Date: 20220424
  Serious: Yes (Other)
  Sender: FDA-Public Use
  Company Number: US-PFIZER INC-202101844511

PATIENT
  Age: 55 Year
  Sex: Male
  Weight: 68.934 kg

DRUGS (1)
  1. XELJANZ [Suspect]
     Active Substance: TOFACITINIB CITRATE
     Dosage: TAKE ONE TABLET BY MOUTH IN THE MORNING AND 1 TABLET IN THE EVENING
     Route: 048

REACTIONS (1)
  - Thrombosis [Not Recovered/Not Resolved]
